FAERS Safety Report 18560975 (Version 1)
Quarter: 2020Q4

REPORT INFORMATION
  Report Type: Report from Study
  Country: US (occurrence: US)
  Receive Date: 20201130
  Receipt Date: 20201130
  Transmission Date: 20210114
  Serious: Yes (Other)
  Sender: FDA-Public Use
  Company Number: US-BAUSCH-BL-2020-034096

PATIENT

DRUGS (2)
  1. CUPRIMINE [Suspect]
     Active Substance: PENICILLAMINE
     Indication: HEPATO-LENTICULAR DEGENERATION
     Dosage: STARTED YEARS BEFORE THE DATE OF REPORT
     Route: 048
  2. ZINC SULFATE. [Interacting]
     Active Substance: ZINC SULFATE
     Indication: HEPATO-LENTICULAR DEGENERATION
     Route: 048

REACTIONS (8)
  - Weight increased [Unknown]
  - Asthenia [Unknown]
  - Fatigue [Unknown]
  - Abdominal pain upper [Not Recovered/Not Resolved]
  - Hepatic steatosis [Unknown]
  - Depression [Unknown]
  - Aggression [Unknown]
  - Drug interaction [Unknown]
